FAERS Safety Report 21158891 (Version 1)
Quarter: 2022Q3

REPORT INFORMATION
  Report Type: Spontaneous
  Country: US (occurrence: US)
  Receive Date: 20220802
  Receipt Date: 20220802
  Transmission Date: 20221027
  Serious: Yes (Other)
  Sender: FDA-Public Use
  Company Number: US-SIMILASAN-2022USSIMSPO00108

PATIENT

DRUGS (1)
  1. CONIUM MACULATUM FLOWERING TOP\HOMEOPATHICS\GRAPHITE\SULFUR [Suspect]
     Active Substance: CONIUM MACULATUM FLOWERING TOP\HOMEOPATHICS\GRAPHITE\SULFUR
     Indication: Hordeolum
     Route: 047

REACTIONS (4)
  - Chemical burns of eye [Recovering/Resolving]
  - Condition aggravated [Recovering/Resolving]
  - Ocular hyperaemia [Recovering/Resolving]
  - Eye symptom [Recovering/Resolving]
